FAERS Safety Report 11520152 (Version 1)
Quarter: 2015Q3

REPORT INFORMATION
  Report Type: Spontaneous
  Country: US (occurrence: US)
  Receive Date: 20150918
  Receipt Date: 20150918
  Transmission Date: 20151125
  Serious: No
  Sender: FDA-Public Use
  Company Number: US-RB-071666-14

PATIENT

DRUGS (1)
  1. MUCINEX MAXIMUM STRENGTH [Suspect]
     Active Substance: GUAIFENESIN
     Indication: PRODUCT USED FOR UNKNOWN INDICATION
     Dosage: 1200MG. TOOK PRODUCT LAST AT 8:00 AM. TOTAL AMOUNT USED: 8 TABLETS.,BID
     Route: 065
     Dates: start: 20141206

REACTIONS (1)
  - Foreign body [Recovered/Resolved]

NARRATIVE: CASE EVENT DATE: 20141210
